FAERS Safety Report 8616717-9 (Version None)
Quarter: 2012Q3

REPORT INFORMATION
  Report Type: 
  Country: None (occurrence: None)
  Receive Date: 20120823
  Receipt Date: 20120817
  Transmission Date: 20120928
  Serious: Yes (Other)
  Sender: FDA-Public Use
  Company Number: GB-009507513-1203GBR00037

PATIENT

DRUGS (10)
  1. ISOSORBIDE MONONITRATE [Concomitant]
  2. PRILOSEC [Concomitant]
  3. LEVEMIR [Concomitant]
  4. NOVORAPID [Concomitant]
  5. LEVOTIROXINA S.O [Concomitant]
  6. NICORANDIL [Concomitant]
  7. OMEPRAZOLE [Concomitant]
  8. ZOCOR [Suspect]
     Indication: BLOOD CHOLESTEROL INCREASED
     Dosage: 1 DF, QD
     Route: 048
     Dates: start: 20111212, end: 20120203
  9. CLOPIDEGREL [Concomitant]
  10. DILTIAZEM HCL [Concomitant]

REACTIONS (2)
  - PAIN IN EXTREMITY [None]
  - MYALGIA [None]
